FAERS Safety Report 12266268 (Version 1)
Quarter: 2016Q2

REPORT INFORMATION
  Report Type: Spontaneous
  Country: US (occurrence: None)
  Receive Date: 20160413
  Receipt Date: 20160413
  Transmission Date: 20160815
  Serious: Yes (Death, Life-Threatening, Hospitalization)
  Sender: FDA-Public Use
  Company Number: None

PATIENT
  Age: 62 Year
  Sex: Female
  Weight: 55.4 kg

DRUGS (3)
  1. OFATUMUMAB [Suspect]
     Active Substance: OFATUMUMAB
     Indication: DRUG HYPERSENSITIVITY
     Route: 041
     Dates: start: 20160130, end: 20160131
  2. OFATUMUMAB [Suspect]
     Active Substance: OFATUMUMAB
     Indication: CHRONIC LYMPHOCYTIC LEUKAEMIA
     Route: 041
     Dates: start: 20160130, end: 20160131
  3. OFATUMUMAB [Suspect]
     Active Substance: OFATUMUMAB
     Indication: RICHTER^S SYNDROME
     Route: 041
     Dates: start: 20160130, end: 20160131

REACTIONS (4)
  - Generalised oedema [None]
  - Anaphylactic shock [None]
  - Acute kidney injury [None]
  - Gastrointestinal oedema [None]

NARRATIVE: CASE EVENT DATE: 20160130
